FAERS Safety Report 8819510 (Version 1)
Quarter: 2012Q4

REPORT INFORMATION
  Report Type: 
  Country: CH (occurrence: CH)
  Receive Date: 20120930
  Receipt Date: 20120930
  Transmission Date: 20130627
  Serious: Yes (Hospitalization, Other)
  Sender: FDA-Public Use
  Company Number: CH-MERCK-1209CHE011770

PATIENT
  Age: 56 Year
  Sex: Female

DRUGS (10)
  1. NOXAFIL [Suspect]
     Indication: PROPHYLAXIS
     Dosage: 200 mg, tid
     Route: 048
     Dates: start: 20120725, end: 20120809
  2. VINCRISTINE SULFATE [Suspect]
     Indication: LEUKAEMIA
     Dosage: UNk, 1 infusion in total
     Route: 042
     Dates: start: 20120803, end: 20120803
  3. IMATINIB MESYLATE [Suspect]
     Indication: LEUKAEMIA
     Dosage: 400 mg, bid
     Route: 048
     Dates: start: 20120803, end: 20120809
  4. AMLODIPINE [Concomitant]
     Dosage: 10 mg, qd
     Route: 048
  5. WELLVONE [Concomitant]
     Dosage: 1500 mg, qd
     Route: 048
  6. MOTILIUM [Concomitant]
     Dosage: 10 mg, tid
     Route: 048
  7. ZOLPIDEM TARTRATE [Concomitant]
     Dosage: 10 mg, qd
     Route: 048
  8. ESOMEPRAZOLE [Concomitant]
     Dosage: 40 mg, UNK
     Dates: start: 20120719, end: 20120809
  9. COTRIMAZOLE [Concomitant]
     Dosage: 160 mg, 1 in 2 days
     Dates: start: 20120725
  10. DEXAMETHASONE [Concomitant]
     Dosage: 40 mg, qd
     Route: 048
     Dates: start: 20120803

REACTIONS (4)
  - Ileus paralytic [Recovered/Resolved]
  - Mucosal inflammation [Recovered/Resolved]
  - Hypertension [Recovered/Resolved]
  - Hyponatraemia [Recovered/Resolved]
